FAERS Safety Report 17422016 (Version 1)
Quarter: 2020Q1

REPORT INFORMATION
  Report Type: Report from Study
  Country: IT (occurrence: IT)
  Receive Date: 20200214
  Receipt Date: 20200214
  Transmission Date: 20200409
  Serious: Yes (Other)
  Sender: FDA-Public Use
  Company Number: IT-ASTRAZENECA-2020SE22511

PATIENT
  Sex: Female

DRUGS (1)
  1. OLAPARIB. [Suspect]
     Active Substance: OLAPARIB
     Indication: OVARIAN CANCER
     Route: 048

REACTIONS (1)
  - Toxicity to various agents [Unknown]
